FAERS Safety Report 6656727-4 (Version None)
Quarter: 2010Q1

REPORT INFORMATION
  Report Type: 
  Country: None (occurrence: None)
  Receive Date: 20100324
  Receipt Date: 20100311
  Transmission Date: 20100710
  Serious: Yes (Hospitalization)
  Sender: FDA-Public Use
  Company Number: 232543J10USA

PATIENT
  Age: 58 Year
  Sex: Female

DRUGS (4)
  1. REBIF [Suspect]
     Indication: MULTIPLE SCLEROSIS
     Dosage: 44 MCG, 3 IN 1 WEEKS, SUBCUTANEOUS
     Route: 058
     Dates: start: 20050707
  2. LOTREL (LOTREL /01289101/) [Concomitant]
  3. FOSAMAX [Concomitant]
  4. ACTONEL [Concomitant]

REACTIONS (12)
  - AORTIC ANEURYSM [None]
  - APHASIA [None]
  - DEHYDRATION [None]
  - GAZE PALSY [None]
  - HYPOTENSION [None]
  - LOSS OF CONSCIOUSNESS [None]
  - MEMORY IMPAIRMENT [None]
  - MICTURITION URGENCY [None]
  - MUSCLE RIGIDITY [None]
  - PNEUMONIA [None]
  - URINARY TRACT INFECTION [None]
  - VOMITING [None]
